FAERS Safety Report 8179686-4 (Version None)
Quarter: 2012Q1

REPORT INFORMATION
  Report Type: 
  Country: None (occurrence: None)
  Receive Date: 20120302
  Receipt Date: 20120229
  Transmission Date: 20120608
  Serious: Yes (Hospitalization)
  Sender: FDA-Public Use
  Company Number: IT-ABBOTT-12P-083-0909936-00

PATIENT
  Sex: Female

DRUGS (2)
  1. ACETAMINOPHEN [Concomitant]
     Indication: PRODUCT USED FOR UNKNOWN INDICATION
  2. CLARITHROMYCIN [Suspect]
     Indication: HYPERPYREXIA
     Dosage: 125 MG/5 ML, (15 MG/KG DAILY DOSE)
     Route: 048
     Dates: start: 20120201, end: 20120201

REACTIONS (1)
  - ERYTHEMA [None]
